FAERS Safety Report 6187313-0 (Version None)
Quarter: 2009Q2

REPORT INFORMATION
  Report Type: 
  Country: None (occurrence: None)
  Receive Date: 20090512
  Receipt Date: 20090508
  Transmission Date: 20091009
  Serious: Yes (Hospitalization)
  Sender: FDA-Public Use
  Company Number: US-JNJFOC-20090502219

PATIENT
  Sex: Female
  Weight: 112.49 kg

DRUGS (8)
  1. DURAGESIC-100 [Suspect]
     Indication: PAIN
     Route: 062
  2. ASPIRIN [Concomitant]
     Indication: BLOOD DISORDER
     Route: 048
  3. CELEBREX [Concomitant]
     Indication: ARTHRITIS
     Route: 048
  4. PRILOSEC [Concomitant]
     Indication: GASTROOESOPHAGEAL REFLUX DISEASE
     Route: 048
  5. CYMBALTA [Concomitant]
     Indication: NEUROPATHY PERIPHERAL
     Route: 048
  6. CYMBALTA [Concomitant]
     Indication: DEPRESSION
     Route: 048
  7. TRIAMTERENE AND HYDROCHLOROTHIAZIDE [Concomitant]
     Indication: SWELLING
     Route: 048
  8. COUMADIN [Concomitant]
     Indication: BLOOD DISORDER
     Route: 048

REACTIONS (5)
  - APPLICATION SITE RASH [None]
  - BREAST CANCER [None]
  - NARCOLEPSY [None]
  - SLEEP APNOEA SYNDROME [None]
  - THROMBOSIS [None]
